FAERS Safety Report 7399936-1 (Version None)
Quarter: 2011Q2

REPORT INFORMATION
  Report Type: 
  Country: None (occurrence: None)
  Receive Date: 20110407
  Receipt Date: 20110325
  Transmission Date: 20111010
  Serious: No
  Sender: FDA-Public Use
  Company Number: US-JNJFOC-20110312451

PATIENT
  Sex: Female
  Weight: 122.47 kg

DRUGS (3)
  1. SADOZ FENTANYL TRANSDERMAL SYSTEM [Suspect]
     Indication: ARTHRITIS
     Route: 062
  2. SADOZ FENTANYL TRANSDERMAL SYSTEM [Suspect]
     Indication: SYSTEMIC LUPUS ERYTHEMATOSUS
     Route: 062
  3. UNKNOWN MULTIPLE MEDICATION [Concomitant]
     Route: 065

REACTIONS (3)
  - SOMNOLENCE [None]
  - INCORRECT DRUG ADMINISTRATION DURATION [None]
  - VERTIGO [None]
